FAERS Safety Report 5523060-3 (Version None)
Quarter: 2007Q4

REPORT INFORMATION
  Report Type: 
  Country: None (occurrence: None)
  Receive Date: 20071119
  Receipt Date: 20071109
  Transmission Date: 20080405
  Serious: Yes (Other)
  Sender: FDA-Public Use
  Company Number: 163-21880-07071483

PATIENT
  Age: 73 Year
  Sex: Female

DRUGS (2)
  1. REVLIMID [Suspect]
     Indication: MYELODYSPLASTIC SYNDROME
     Dosage: 10 MG, DAILY, ORAL; 5 MG, DAILY, ORAL
     Route: 048
     Dates: start: 20070116, end: 20070201
  2. REVLIMID [Suspect]
     Indication: MYELODYSPLASTIC SYNDROME
     Dosage: 10 MG, DAILY, ORAL; 5 MG, DAILY, ORAL
     Route: 048
     Dates: start: 20070301, end: 20070802

REACTIONS (9)
  - CHOLELITHIASIS [None]
  - DIARRHOEA [None]
  - MUSCLE SPASMS [None]
  - NAUSEA [None]
  - PLATELET COUNT DECREASED [None]
  - RASH [None]
  - RED BLOOD CELL COUNT DECREASED [None]
  - VOMITING [None]
  - WHITE BLOOD CELL COUNT DECREASED [None]
